FAERS Safety Report 6574304-0 (Version None)
Quarter: 2010Q1

REPORT INFORMATION
  Report Type: 
  Country: None (occurrence: None)
  Receive Date: 20100201
  Receipt Date: 20100119
  Transmission Date: 20100710
  Serious: Yes (Death)
  Sender: FDA-Public Use
  Company Number: 1000011534

PATIENT
  Age: 38 Year
  Sex: Male
  Weight: 74.8 kg

DRUGS (4)
  1. CELEXA [Suspect]
     Dosage: 10 MG (10 MG, 1IN 1 D),ORAL
     Route: 048
  2. APO-ZOPICLONE (7.5 MILLIGRAM, TABLETS) [Concomitant]
  3. CLONAZEPAM [Concomitant]
  4. SEROQUEL [Concomitant]

REACTIONS (12)
  - ABDOMINAL PAIN [None]
  - COMPLETED SUICIDE [None]
  - CONSTIPATION [None]
  - HEADACHE [None]
  - MASKED FACIES [None]
  - MORBID THOUGHTS [None]
  - MUSCLE RIGIDITY [None]
  - NUCHAL RIGIDITY [None]
  - OVERDOSE [None]
  - PALLOR [None]
  - PERSONALITY CHANGE [None]
  - TIC [None]
